FAERS Safety Report 12256154 (Version 1)
Quarter: 2016Q2

REPORT INFORMATION
  Report Type: Spontaneous
  Country: US (occurrence: None)
  Receive Date: 20160411
  Receipt Date: 20160411
  Transmission Date: 20160815
  Serious: Yes (Other)
  Sender: FDA-Public Use
  Company Number: None

PATIENT
  Age: 61 Year
  Sex: Male
  Weight: 81.65 kg

DRUGS (2)
  1. AZOR [Suspect]
     Active Substance: AMLODIPINE BESYLATE\OLMESARTAN MEDOXOMIL
     Indication: HYPERTENSION
     Route: 048
     Dates: start: 20160325
  2. TYLENOL [Concomitant]
     Active Substance: ACETAMINOPHEN

REACTIONS (34)
  - Dizziness [None]
  - Photosensitivity reaction [None]
  - Muscle spasms [None]
  - Urine output decreased [None]
  - Ocular discomfort [None]
  - Ear disorder [None]
  - Asthenia [None]
  - Erectile dysfunction [None]
  - Condition aggravated [None]
  - Rash [None]
  - Burning sensation [None]
  - Gastrointestinal pain [None]
  - Constipation [None]
  - Flushing [None]
  - Anxiety [None]
  - Malaise [None]
  - Flank pain [None]
  - Pain [None]
  - Weight increased [None]
  - Thyroid pain [None]
  - Visual impairment [None]
  - Abdominal distension [None]
  - Apathy [None]
  - Gait disturbance [None]
  - Body temperature increased [None]
  - Sensation of foreign body [None]
  - Eye pain [None]
  - Paranasal sinus discomfort [None]
  - Euphoric mood [None]
  - Lethargy [None]
  - Somnolence [None]
  - Oropharyngeal pain [None]
  - Swelling face [None]
  - Renal pain [None]

NARRATIVE: CASE EVENT DATE: 20160325
